FAERS Safety Report 7997989-0 (Version None)
Quarter: 2011Q4

REPORT INFORMATION
  Report Type: 
  Country: None (occurrence: None)
  Receive Date: 20111221
  Receipt Date: 20111215
  Transmission Date: 20120403
  Serious: Yes (Hospitalization, Other)
  Sender: FDA-Public Use
  Company Number: US-PFIZER INC-2011305875

PATIENT
  Sex: Female
  Weight: 60.771 kg

DRUGS (5)
  1. METOLAZONE [Concomitant]
     Indication: HYPERTENSION
     Dosage: UNK
  2. SPIRONOLACTONE [Concomitant]
     Indication: HYPERTENSION
     Dosage: UNK
  3. DIGOXIN [Concomitant]
     Indication: HYPERTENSION
     Dosage: UNK
  4. REVATIO [Suspect]
     Indication: ANXIETY
  5. REVATIO [Suspect]
     Indication: HYPERTENSION
     Dosage: 20 MG, 3X/DAY
     Route: 048
     Dates: start: 20111119, end: 20111124

REACTIONS (5)
  - INSOMNIA [None]
  - MENTAL DISORDER [None]
  - DECREASED APPETITE [None]
  - WEIGHT DECREASED [None]
  - VISION BLURRED [None]
